FAERS Safety Report 8849912 (Version 2)
Quarter: 2013Q4

REPORT INFORMATION
  Report Type: Spontaneous
  Country: US (occurrence: US)
  Receive Date: 20121019
  Receipt Date: 20131212
  Transmission Date: 20140711
  Serious: Yes (Other)
  Sender: FDA-Public Use
  Company Number: US-PFIZER INC-2012260616

PATIENT
  Age: 89 Year
  Sex: Female
  Weight: 39 kg

DRUGS (3)
  1. LYRICA [Suspect]
     Indication: HERPES ZOSTER
     Dosage: UNK
  2. LYRICA [Suspect]
     Dosage: 50 MG, 3X/DAY
     Dates: start: 2005
  3. NORVASC [Concomitant]
     Indication: HYPERTENSION
     Dosage: UNK

REACTIONS (6)
  - Fall [Unknown]
  - Hip fracture [Unknown]
  - Pain [Unknown]
  - Eye pain [Unknown]
  - Arthralgia [Unknown]
  - Back pain [Unknown]
